FAERS Safety Report 9660196 (Version 1)
Quarter: 2013Q4

REPORT INFORMATION
  Report Type: Spontaneous
  Country: US (occurrence: US)
  Receive Date: 20131031
  Receipt Date: 20131031
  Transmission Date: 20140711
  Serious: No
  Sender: FDA-Public Use
  Company Number: US-PURDUE-USA-2010-0072857

PATIENT
  Sex: 0

DRUGS (2)
  1. OXYCONTIN TABLETS [Suspect]
     Indication: PAIN
     Dosage: 40 MG, UNK
  2. OXYCONTIN TABLETS [Suspect]
     Indication: DEPRESSION

REACTIONS (1)
  - Drug effect delayed [Unknown]
